FAERS Safety Report 26117989 (Version 4)
Quarter: 2025Q4

REPORT INFORMATION
  Report Type: Spontaneous
  Country: EU (occurrence: EU)
  Receive Date: 20251203
  Receipt Date: 20251229
  Transmission Date: 20260118
  Serious: Yes (Death, Other)
  Sender: BRISTOL-MYERS SQUIBB COMPANY
  Company Number: EU-BRISTOL-MYERS SQUIBB COMPANY-2025-162691

PATIENT
  Age: 65 Year
  Sex: Male

DRUGS (2)
  1. AZACITIDINE [Suspect]
     Active Substance: AZACITIDINE
     Indication: Chronic myeloid leukaemia
  2. VENETOCLAX [Suspect]
     Active Substance: VENETOCLAX
     Indication: Chronic myeloid leukaemia

REACTIONS (3)
  - Multiple organ dysfunction syndrome [Fatal]
  - Neutropenia [Fatal]
  - Sepsis [Fatal]
